FAERS Safety Report 8009380-1 (Version None)
Quarter: 2011Q4

REPORT INFORMATION
  Report Type: 
  Country: None (occurrence: None)
  Receive Date: 20111227
  Receipt Date: 20111221
  Transmission Date: 20120403
  Serious: Yes (Death)
  Sender: FDA-Public Use
  Company Number: JP-SANOFI-AVENTIS-2011SA084774

PATIENT
  Age: 79 Year
  Sex: Male

DRUGS (4)
  1. DEXAMETHASONE [Suspect]
     Indication: PROSTATE CANCER
     Route: 065
  2. DEXAMETHASONE [Suspect]
     Dosage: 0.5-1 MG
     Route: 048
  3. DOCETAXEL [Suspect]
     Indication: PROSTATE CANCER
     Dosage: 2-3 HOURS ON DAY 1 OF EVERY THREE WEEKS
     Route: 041
  4. ANTIEMETICS AND ANTINAUSEANTS [Concomitant]
     Indication: PREMEDICATION
     Dosage: 30 MIN BEFORE DOCETAXEL ADMINISTRATION
     Route: 042

REACTIONS (1)
  - INTERSTITIAL LUNG DISEASE [None]
